FAERS Safety Report 14073403 (Version 1)
Quarter: 2017Q4

REPORT INFORMATION
  Report Type: Spontaneous
  Country: US (occurrence: None)
  Receive Date: 20171011
  Receipt Date: 20171011
  Transmission Date: 20180321
  Serious: No
  Sender: FDA-Public Use
  Company Number: None

PATIENT

DRUGS (2)
  1. SPIRONOLACTONE. [Suspect]
     Active Substance: SPIRONOLACTONE
     Dosage: TYPE - BOTTLE?SIZE 100 TABLETS
     Route: 048
  2. PROPAFENONE HCL [Suspect]
     Active Substance: PROPAFENONE HYDROCHLORIDE
     Dosage: TYPE - BOTTLE?SIZE - 100 TABLETS
     Route: 048

REACTIONS (2)
  - Product packaging confusion [None]
  - Product selection error [None]
